FAERS Safety Report 5166457-6 (Version None)
Quarter: 2006Q4

REPORT INFORMATION
  Report Type: 
  Country: None (occurrence: None)
  Receive Date: 20061207
  Receipt Date: 20061129
  Transmission Date: 20070319
  Serious: Yes (Other)
  Sender: FDA-Public Use
  Company Number: US-BAYER-200616102GDS

PATIENT
  Age: 70 Year
  Sex: Male

DRUGS (2)
  1. SORAFENIB [Suspect]
     Indication: NON-SMALL CELL LUNG CANCER STAGE IV
     Dosage: TOTAL DAILY DOSE: 800 MG
     Route: 048
  2. SORAFENIB [Suspect]
     Dosage: TOTAL DAILY DOSE: 400 MG
     Route: 048

REACTIONS (4)
  - BLISTER [None]
  - LEUKOCYTOCLASTIC VASCULITIS [None]
  - PAIN [None]
  - RASH ERYTHEMATOUS [None]
